APPROVED DRUG PRODUCT: CALCIUM ACETATE
Active Ingredient: CALCIUM ACETATE
Strength: 667MG
Dosage Form/Route: TABLET;ORAL
Application: A077693 | Product #001
Applicant: HIKMA PHARMACEUTICALS USA INC
Approved: Jan 30, 2008 | RLD: No | RS: No | Type: DISCN